FAERS Safety Report 8680113 (Version 3)
Quarter: 2012Q4

REPORT INFORMATION
  Report Type: Report from Study
  Country: IT (occurrence: IT)
  Receive Date: 20120724
  Receipt Date: 20121108
  Transmission Date: 20130627
  Serious: Yes (Hospitalization)
  Sender: FDA-Public Use
  Company Number: IT-ROCHE-1086557

PATIENT
  Age: 64 Year
  Sex: Female
  Weight: 70 kg

DRUGS (6)
  1. TRASTUZUMAB [Suspect]
     Indication: BREAST CANCER
     Dosage: last dose prior to the sae on 27/Jun/2012
     Route: 042
     Dates: start: 20120330, end: 20120710
  2. ZOLEDRONIC ACID [Concomitant]
     Route: 065
     Dates: start: 20120627, end: 20120627
  3. PACLITAXEL [Concomitant]
     Route: 065
     Dates: start: 20120627, end: 20120627
  4. ATENOLOL [Concomitant]
     Route: 065
     Dates: start: 20080701
  5. FENTANYL [Concomitant]
     Dosage: 50 mcg/hr
     Route: 065
     Dates: start: 20120306
  6. PARACETAMOL [Concomitant]
     Route: 065
     Dates: start: 20120306

REACTIONS (1)
  - Pathological fracture [Recovered/Resolved]
